FAERS Safety Report 6232518-3 (Version None)
Quarter: 2009Q2

REPORT INFORMATION
  Report Type: 
  Country: None (occurrence: None)
  Receive Date: 20090612
  Receipt Date: 20090601
  Transmission Date: 20091009
  Serious: Yes (Other)
  Sender: FDA-Public Use
  Company Number: 8047214

PATIENT
  Age: 49 Year
  Sex: Female
  Weight: 68 kg

DRUGS (6)
  1. KEPPRA XR [Suspect]
     Indication: CONVULSION
     Dosage: 500 MG 2/D PO
     Route: 048
     Dates: start: 20040101
  2. SYNTHROID [Concomitant]
  3. MULTI-VITAMIN [Concomitant]
  4. FISH OIL [Concomitant]
  5. CALCIUM WITH VITAMIN D [Concomitant]
  6. VITAMIN D [Concomitant]

REACTIONS (7)
  - ANXIETY [None]
  - CHEST DISCOMFORT [None]
  - CONVULSION [None]
  - DIZZINESS [None]
  - HEART RATE IRREGULAR [None]
  - NASOPHARYNGITIS [None]
  - NERVOUSNESS [None]
